FAERS Safety Report 6697797-7 (Version None)
Quarter: 2010Q2

REPORT INFORMATION
  Report Type: 
  Country: None (occurrence: None)
  Receive Date: 20100423
  Receipt Date: 20100413
  Transmission Date: 20101027
  Serious: Yes (Other)
  Sender: FDA-Public Use
  Company Number: 2010AL002278

PATIENT
  Age: 55 Year
  Sex: Male

DRUGS (4)
  1. SPIRONOLACTONE [Suspect]
     Indication: ASCITES
     Dosage: 25 MG;PO
     Route: 048
     Dates: start: 20100329, end: 20100401
  2. METHADONE HCL [Concomitant]
  3. OMEPRAZOLE [Concomitant]
  4. LACTULOSE [Concomitant]

REACTIONS (1)
  - NEUTROPENIA [None]
